FAERS Safety Report 12164386 (Version 5)
Quarter: 2016Q2

REPORT INFORMATION
  Report Type: Spontaneous
  Country: JP (occurrence: JP)
  Receive Date: 20160309
  Receipt Date: 20160415
  Transmission Date: 20160815
  Serious: Yes (Hospitalization, Other)
  Sender: FDA-Public Use
  Company Number: JP-PFIZER INC-2016139015

PATIENT
  Age: 55 Year
  Sex: Female
  Weight: 43 kg

DRUGS (24)
  1. INSULIN [Concomitant]
     Active Substance: INSULIN NOS
     Indication: DIABETES MELLITUS
     Dosage: UNK
  2. ALBUMIN TANNATE [Concomitant]
     Active Substance: ALBUMIN BOVINE\TANNIC ACID
     Dosage: UNK
  3. CEFAZOLIN [Suspect]
     Active Substance: CEFAZOLIN
     Indication: PROPHYLAXIS
     Dosage: 1 G, 2X/DAY
     Route: 042
     Dates: start: 20150220, end: 20150220
  4. ROCALTROL [Concomitant]
     Active Substance: CALCITRIOL
     Dosage: UNK
  5. MARZULENE S [Concomitant]
     Active Substance: GLUTAMINE\SODIUM GUALENATE
     Dosage: UNK
  6. LOXONIN [Concomitant]
     Active Substance: LOXOPROFEN SODIUM
     Dosage: UNK
  7. CONSTAN [Concomitant]
     Active Substance: ALPRAZOLAM
     Dosage: UNK
  8. FOSPHENYTOIN SODIUM. [Suspect]
     Active Substance: FOSPHENYTOIN SODIUM
     Indication: SEIZURE
     Dosage: 250 MG, 1X/DAY
     Route: 042
     Dates: start: 20150222, end: 20150223
  9. TAKEPRON [Concomitant]
     Active Substance: LANSOPRAZOLE
     Indication: PROPHYLAXIS
     Dosage: 30 G, 2X/DAY
     Dates: start: 20150221, end: 20150223
  10. NAOTAMIN [Concomitant]
     Active Substance: NAFAMOSTAT
     Dosage: UNK
     Dates: start: 20150223, end: 20150223
  11. NU-LOTAN [Concomitant]
     Active Substance: LOSARTAN POTASSIUM
     Dosage: UNK
  12. ARTIST [Concomitant]
     Active Substance: CARVEDILOL
     Dosage: UNK
  13. NICARDIPINE [Concomitant]
     Active Substance: NICARDIPINE
     Indication: BLOOD PRESSURE MANAGEMENT
     Dosage: UNK
     Route: 042
     Dates: start: 20150221, end: 20150312
  14. PLETAAL [Concomitant]
     Active Substance: CILOSTAZOL
     Dosage: UNK
  15. TENELIA [Concomitant]
     Active Substance: TENELIGLIPTIN
     Dosage: UNK
  16. LIPITOR [Concomitant]
     Active Substance: ATORVASTATIN CALCIUM
     Dosage: UNK
  17. ACETAMINOPHEN. [Concomitant]
     Active Substance: ACETAMINOPHEN
     Dosage: UNK
  18. MIYA-BM [Concomitant]
     Active Substance: CLOSTRIDIUM BUTYRICUM SPORES STRAIN M-55
     Dosage: UNK
  19. NAUZELIN [Concomitant]
     Active Substance: DOMPERIDONE
     Dosage: UNK
  20. MUCOSTA [Concomitant]
     Active Substance: REBAMIPIDE
     Dosage: UNK
  21. FOSPHENYTOIN SODIUM. [Suspect]
     Active Substance: FOSPHENYTOIN SODIUM
     Indication: CEREBELLAR HAEMORRHAGE
  22. NORVASC [Concomitant]
     Active Substance: AMLODIPINE BESYLATE
     Dosage: UNK
  23. GASMOTIN [Concomitant]
     Active Substance: MOSAPRIDE CITRATE
     Dosage: UNK
  24. CALTAN [Concomitant]
     Active Substance: CALCIUM CARBONATE
     Dosage: UNK

REACTIONS (1)
  - Acute generalised exanthematous pustulosis [Recovered/Resolved]

NARRATIVE: CASE EVENT DATE: 20150223
